FAERS Safety Report 4840293-X (Version None)
Quarter: 2005Q4

REPORT INFORMATION
  Report Type: 
  Country: None (occurrence: None)
  Receive Date: 20051031
  Receipt Date: 20050715
  Transmission Date: 20060501
  Serious: No
  Sender: FDA-Public Use
  Company Number: 200515788US

PATIENT
  Age: 61 Year
  Sex: Female

DRUGS (2)
  1. KETEK [Suspect]
     Indication: MULTIPLE ALLERGIES
     Dosage: 800 MG/DAY PO
     Route: 048
     Dates: start: 20050710, end: 20050714
  2. ASPIRIN [Concomitant]

REACTIONS (3)
  - DIZZINESS [None]
  - VISION BLURRED [None]
  - VISUAL DISTURBANCE [None]
